FAERS Safety Report 17063424 (Version 2)
Quarter: 2020Q1

REPORT INFORMATION
  Report Type: Report from Study
  Country: JP (occurrence: JP)
  Receive Date: 20191122
  Receipt Date: 20200107
  Transmission Date: 20200409
  Serious: No
  Sender: FDA-Public Use
  Company Number: JP-BEH-2019109766

PATIENT
  Sex: Male
  Weight: 12.9 kg

DRUGS (21)
  1. IDELVION [Suspect]
     Active Substance: COAGULATION FACTOR IX RECOMBINANT HUMAN
     Dosage: 1000 INTERNATIONAL UNIT, QOW
     Route: 042
     Dates: start: 20190410, end: 20190508
  2. INCREMIN [FERRIC PYROPHOSPHATE] [Concomitant]
     Indication: ANAEMIA
     Dosage: UNK
     Route: 048
     Dates: start: 20190424
  3. HIRUDOID [Concomitant]
     Active Substance: GLYCOSAMINOGLYCANS
     Indication: DRY SKIN
     Dosage: LOTIONS
     Route: 065
     Dates: start: 20181226, end: 20190109
  4. HIRUDOID [Concomitant]
     Active Substance: GLYCOSAMINOGLYCANS
     Indication: ASTEATOSIS
  5. IDELVION [Suspect]
     Active Substance: COAGULATION FACTOR IX RECOMBINANT HUMAN
     Dosage: 500 INTERNATIONAL UNIT, QW
     Route: 042
     Dates: start: 20181121, end: 20190123
  6. LOCOID [Concomitant]
     Active Substance: HYDROCORTISONE BUTYRATE
     Indication: ECZEMA
     Dosage: UNK
     Route: 065
     Dates: start: 20181226, end: 20190109
  7. ASVERIN [RIBAVIRIN] [Concomitant]
     Indication: UPPER RESPIRATORY TRACT INFLAMMATION
     Dosage: UNK
     Route: 048
     Dates: start: 20190227, end: 20190306
  8. IDELVION [Suspect]
     Active Substance: COAGULATION FACTOR IX RECOMBINANT HUMAN
     Dosage: 1000 INTERNATIONAL UNIT, QOW
     Route: 042
     Dates: start: 20190130, end: 20190327
  9. IDELVION [Suspect]
     Active Substance: COAGULATION FACTOR IX RECOMBINANT HUMAN
     Dosage: 1000 INTERNATIONAL UNIT, QOW
     Route: 042
     Dates: start: 20190410, end: 20190508
  10. WHITE PETROLATUM [Concomitant]
     Active Substance: PETROLATUM
     Indication: DRY SKIN
     Dosage: LIQUIDS
     Route: 065
     Dates: start: 20190109, end: 20190116
  11. IDELVION [Suspect]
     Active Substance: COAGULATION FACTOR IX RECOMBINANT HUMAN
     Dosage: 500 INTERNATIONAL UNIT, QW
     Route: 042
     Dates: start: 20181121, end: 20190123
  12. WHITE PETROLATUM [Concomitant]
     Active Substance: PETROLATUM
     Indication: ASTEATOSIS
  13. KINDAVATE [Concomitant]
     Active Substance: CLOBETASONE BUTYRATE
     Indication: ECZEMA
     Dosage: UNK
     Route: 065
     Dates: start: 20190109, end: 20190116
  14. RINDERON VG [Concomitant]
     Active Substance: BETAMETHASONE VALERATE\GENTAMICIN SULFATE
     Indication: ECZEMA
     Dosage: UNK
     Route: 065
     Dates: start: 20190213, end: 20190220
  15. MUCODYNE [Concomitant]
     Active Substance: CARBOCYSTEINE
     Indication: UPPER RESPIRATORY TRACT INFLAMMATION
     Dosage: UNK
     Route: 048
     Dates: start: 20190227, end: 20190306
  16. TRANSAMIN [Concomitant]
     Active Substance: TRANEXAMIC ACID
     Indication: HAEMORRHAGE
     Dosage: POWDER
     Route: 048
     Dates: start: 20190407, end: 20190417
  17. IDELVION [Suspect]
     Active Substance: COAGULATION FACTOR IX RECOMBINANT HUMAN
     Indication: FACTOR IX DEFICIENCY
     Dosage: 500 - 750 INTERNATIONAL UNIT (ONCE IN 5 DAYS TO 14 DAYS)
     Route: 042
     Dates: start: 20170517, end: 20181114
  18. IDELVION [Suspect]
     Active Substance: COAGULATION FACTOR IX RECOMBINANT HUMAN
     Indication: FACTOR IX DEFICIENCY
     Dosage: 500 - 750 INTERNATIONAL UNIT (ONCE IN 5 DAYS TO 14 DAYS)
     Route: 042
     Dates: start: 20170517, end: 20181114
  19. IDELVION [Suspect]
     Active Substance: COAGULATION FACTOR IX RECOMBINANT HUMAN
     Dosage: 1000 INTERNATIONAL UNIT, QOW
     Route: 042
     Dates: start: 20190130, end: 20190327
  20. IDELVION [Suspect]
     Active Substance: COAGULATION FACTOR IX RECOMBINANT HUMAN
     Dosage: 500 INTERNATIONAL UNIT, TOT
     Route: 042
     Dates: start: 20190407, end: 20190407
  21. IDELVION [Suspect]
     Active Substance: COAGULATION FACTOR IX RECOMBINANT HUMAN
     Dosage: 500 INTERNATIONAL UNIT, TOT
     Route: 042
     Dates: start: 20190407, end: 20190407

REACTIONS (1)
  - Upper respiratory tract inflammation [Recovered/Resolved]

NARRATIVE: CASE EVENT DATE: 20190227
